FAERS Safety Report 5334629-3 (Version None)
Quarter: 2007Q2

REPORT INFORMATION
  Report Type: 
  Country: None (occurrence: None)
  Receive Date: 20070525
  Receipt Date: 20070523
  Transmission Date: 20071010
  Serious: Yes (Hospitalization)
  Sender: FDA-Public Use
  Company Number: A0652618A

PATIENT
  Age: 72 Year
  Sex: Female

DRUGS (5)
  1. AVANDAMET [Suspect]
     Route: 048
     Dates: start: 20070101, end: 20070522
  2. AVANDIA [Suspect]
     Route: 048
     Dates: start: 19990101, end: 20070101
  3. GLIPIZIDE [Concomitant]
  4. ZOCOR [Concomitant]
  5. LOTREL [Concomitant]

REACTIONS (3)
  - CORONARY ARTERY OCCLUSION [None]
  - DRUG INEFFECTIVE [None]
  - TRANSIENT ISCHAEMIC ATTACK [None]
